FAERS Safety Report 24292254 (Version 1)
Quarter: 2024Q3

REPORT INFORMATION
  Report Type: Spontaneous
  Country: US (occurrence: None)
  Receive Date: 20240906
  Receipt Date: 20240906
  Transmission Date: 20241016
  Serious: No
  Sender: DOMPE FARMACEUTICI
  Company Number: US-FARMAPROD-202308-2290

PATIENT
  Age: 62 Year
  Sex: Female

DRUGS (7)
  1. OXERVATE [Suspect]
     Active Substance: CENEGERMIN-BKBJ
     Indication: Neurotrophic keratopathy
     Route: 047
     Dates: start: 20230729
  2. OXERVATE [Suspect]
     Active Substance: CENEGERMIN-BKBJ
  3. SYSTANE (HYPROMELLOSE 2910 (4000 MPA.S)) [Concomitant]
     Active Substance: HYPROMELLOSE 2910 (4000 MPA.S)
     Dosage: 0.3 %-0.4%
  4. ESTRACE [Concomitant]
     Active Substance: ESTRADIOL
     Dosage: WITH APPLICATOR.
  5. PROGESTERONE [Concomitant]
     Active Substance: PROGESTERONE
  6. MYRBETRIQ [Concomitant]
     Active Substance: MIRABEGRON
     Dosage: FOR 24 HOURS
  7. NEXLETOL [Concomitant]
     Active Substance: BEMPEDOIC ACID

REACTIONS (3)
  - Eye pain [Recovered/Resolved]
  - Dry eye [Recovering/Resolving]
  - Device leakage [Unknown]

NARRATIVE: CASE EVENT DATE: 20230730
